FAERS Safety Report 6425258-9 (Version None)
Quarter: 2009Q4

REPORT INFORMATION
  Report Type: 
  Country: None (occurrence: None)
  Receive Date: 20091029
  Receipt Date: 20090423
  Transmission Date: 20100525
  Serious: Yes (Other)
  Sender: FDA-Public Use
  Company Number: 192591USA

PATIENT

DRUGS (1)
  1. FLUTAMIDE [Suspect]
     Dosage: 125 MG, ,ORAL
     Route: 048

REACTIONS (1)
  - HEPATITIS [None]
